FAERS Safety Report 8186553-9 (Version None)
Quarter: 2012Q1

REPORT INFORMATION
  Report Type: 
  Country: None (occurrence: None)
  Receive Date: 20120306
  Receipt Date: 20120216
  Transmission Date: 20120608
  Serious: No
  Sender: FDA-Public Use
  Company Number: US-BAYER-2012-016330

PATIENT
  Sex: Female

DRUGS (3)
  1. BEYAZ [Suspect]
     Indication: CONTRACEPTION
     Dosage: UNK MG, UNK
     Route: 048
     Dates: start: 20110101
  2. BEYAZ [Suspect]
     Indication: HORMONE THERAPY
  3. BEYAZ [Suspect]
     Indication: OVARIAN CYST

REACTIONS (5)
  - VAGINAL DISCHARGE [None]
  - VULVOVAGINAL DISCOMFORT [None]
  - MIGRAINE [None]
  - HYPOAESTHESIA [None]
  - PARAESTHESIA [None]
